FAERS Safety Report 4270775-3 (Version None)
Quarter: 2004Q1

REPORT INFORMATION
  Report Type: 
  Country: None (occurrence: None)
  Receive Date: 20040114
  Receipt Date: 20040112
  Transmission Date: 20041129
  Serious: Yes (Death)
  Sender: FDA-Public Use
  Company Number: DE-ROCHE-355614

PATIENT
  Age: 61 Year
  Sex: Male

DRUGS (6)
  1. INTERFERON ALFA-2A [Suspect]
     Indication: RENAL CELL CARCINOMA STAGE UNSPECIFIED
     Route: 065
     Dates: end: 20030131
  2. PROLEUKIN [Suspect]
     Indication: RENAL CELL CARCINOMA STAGE UNSPECIFIED
     Route: 058
     Dates: end: 20030131
  3. FLUOROURACIL [Suspect]
     Indication: RENAL CELL CARCINOMA STAGE UNSPECIFIED
     Route: 065
     Dates: end: 20030131
  4. ACETAMINOPHEN [Concomitant]
     Dates: end: 20030131
  5. METOCLOPRAMIDE DROPS [Concomitant]
     Dates: end: 20030206
  6. NOVALGIN [Concomitant]
     Dates: end: 20030206

REACTIONS (4)
  - ATRIAL FIBRILLATION [None]
  - CARDIAC FAILURE ACUTE [None]
  - ELECTROLYTE IMBALANCE [None]
  - PULMONARY OEDEMA [None]
